FAERS Safety Report 16345932 (Version 2)
Quarter: 2019Q3

REPORT INFORMATION
  Report Type: Report from Study
  Country: JP (occurrence: JP)
  Receive Date: 20190523
  Receipt Date: 20190730
  Transmission Date: 20191004
  Serious: Yes (Hospitalization, Other)
  Sender: FDA-Public Use
  Company Number: JP-GLAXOSMITHKLINE-JP2019JPN088282

PATIENT
  Age: 5 Decade
  Sex: Male
  Weight: 85 kg

DRUGS (34)
  1. BELIMUMAB [Suspect]
     Active Substance: BELIMUMAB
     Indication: SYSTEMIC LUPUS ERYTHEMATOSUS
     Dosage: 10 MG/KG, EVERY 2 WEEKS
     Route: 041
     Dates: start: 20180221, end: 20180322
  2. PREDNISOLONE. [Suspect]
     Active Substance: PREDNISOLONE
     Indication: SYSTEMIC LUPUS ERYTHEMATOSUS
     Dosage: UNK
     Route: 048
  3. PREDNISOLONE. [Suspect]
     Active Substance: PREDNISOLONE
     Dosage: 8 MG, 1D
     Route: 048
     Dates: start: 20180420, end: 20180517
  4. ABILIFY OD TABLETS [Concomitant]
     Dosage: UNK
  5. NERISONA OINTMENT [Concomitant]
     Dosage: UNK
  6. PREDNISOLONE. [Suspect]
     Active Substance: PREDNISOLONE
     Dosage: 5 MG, 1D
     Route: 048
     Dates: start: 20180717
  7. CELLCEPT [Suspect]
     Active Substance: MYCOPHENOLATE MOFETIL\MYCOPHENOLATE MOFETIL HYDROCHLORIDE
     Indication: SYSTEMIC LUPUS ERYTHEMATOSUS
     Dosage: UNK
     Route: 048
     Dates: end: 20181203
  8. HIRUDOID LOTION [Concomitant]
     Dosage: UNK
  9. LAMICTAL [Concomitant]
     Active Substance: LAMOTRIGINE
     Dosage: UNK
  10. BELIMUMAB [Suspect]
     Active Substance: BELIMUMAB
     Dosage: 10 MG/KG, EVERY 4 WEEKS
     Route: 041
     Dates: start: 20180419, end: 20180716
  11. BELIMUMAB [Suspect]
     Active Substance: BELIMUMAB
     Dosage: 10 MG/KG, EVERY 4 WEEKS
     Route: 041
     Dates: start: 20181029, end: 20181126
  12. PREDNISOLONE. [Suspect]
     Active Substance: PREDNISOLONE
     Dosage: 15 MG, 1D
     Route: 048
     Dates: start: 20180221, end: 20180308
  13. ATORVASTATIN CALCIUM TABLET [Concomitant]
     Active Substance: ATORVASTATIN CALCIUM
     Dosage: UNK
  14. SUMILU STICK [Concomitant]
     Indication: SYSTEMIC LUPUS ERYTHEMATOSUS
     Dosage: UNK
  15. BAKTAR COMBINATION TABLETS [Concomitant]
     Active Substance: SULFAMETHOXAZOLE\TRIMETHOPRIM
     Indication: ANTIFUNGAL PROPHYLAXIS
     Dosage: UNK
  16. LOXOPROFEN SODIUM HYDRATE TABLET [Concomitant]
     Indication: SYSTEMIC LUPUS ERYTHEMATOSUS
     Dosage: UNK
  17. PREDNISOLONE. [Suspect]
     Active Substance: PREDNISOLONE
     Dosage: 10 MG, 1D
     Route: 048
     Dates: start: 20180309, end: 20180322
  18. TELMISARTAN TABLETS [Concomitant]
     Active Substance: TELMISARTAN
     Dosage: UNK
  19. TOLEDOMIN [Concomitant]
     Active Substance: MILNACIPRAN HYDROCHLORIDE
     Dosage: UNK
  20. BROTIZOLAM TABLETS [Concomitant]
     Dosage: UNK
  21. LANSOPRAZOLE-OD TABLETS [Concomitant]
     Indication: PROPHYLAXIS AGAINST GASTROINTESTINAL ULCER
     Dosage: UNK
  22. LYRICA [Concomitant]
     Active Substance: PREGABALIN
     Indication: SYSTEMIC LUPUS ERYTHEMATOSUS
     Dosage: UNK
  23. NEORAL [Suspect]
     Active Substance: CYCLOSPORINE
     Indication: SYSTEMIC LUPUS ERYTHEMATOSUS
     Dosage: UNK
     Route: 048
     Dates: end: 20181203
  24. REMERON [Concomitant]
     Active Substance: MIRTAZAPINE
     Dosage: UNK
  25. PLAQUENIL TABLETS (HYDROXYCHLOROQUINE SULFATE) [Concomitant]
     Indication: SYSTEMIC LUPUS ERYTHEMATOSUS
     Dosage: UNK
  26. PREDNISOLONE. [Suspect]
     Active Substance: PREDNISOLONE
     Dosage: 7 MG, 1D
     Route: 048
     Dates: start: 20180518, end: 20180618
  27. PREDNISOLONE. [Suspect]
     Active Substance: PREDNISOLONE
     Dosage: 6 MG, 1D
     Route: 048
     Dates: start: 20180619, end: 20180716
  28. AMLODIPINE OD TABLETS [Concomitant]
     Active Substance: AMLODIPINE BESYLATE
     Dosage: UNK
  29. RISPERDAL [Concomitant]
     Active Substance: RISPERIDONE
     Dosage: UNK
  30. RESLIN TABLETS [Concomitant]
     Dosage: UNK
  31. BELIMUMAB [Suspect]
     Active Substance: BELIMUMAB
     Dosage: 10 MG/KG, EVERY 4 WEEKS
     Route: 041
     Dates: start: 20180813, end: 20180910
  32. PREDNISOLONE. [Suspect]
     Active Substance: PREDNISOLONE
     Dosage: 9 MG, 1D
     Route: 048
     Dates: start: 20180323, end: 20180419
  33. SALICYLIC ACID + PETROLATUM [Concomitant]
     Dosage: UNK
  34. BONALON TABLET [Concomitant]
     Indication: OSTEOPOROSIS PROPHYLAXIS
     Dosage: UNK

REACTIONS (2)
  - Upper respiratory tract inflammation [Recovered/Resolved]
  - Herpes zoster meningitis [Recovered/Resolved]

NARRATIVE: CASE EVENT DATE: 20181015
